FAERS Safety Report 7249608-9 (Version None)
Quarter: 2011Q1

REPORT INFORMATION
  Report Type: 
  Country: None (occurrence: None)
  Receive Date: 20110128
  Receipt Date: 20101216
  Transmission Date: 20110831
  Serious: Yes (Other)
  Sender: FDA-Public Use
  Company Number: JP-BAYER-201013933BYL

PATIENT
  Sex: Male
  Weight: 57 kg

DRUGS (15)
  1. GLAKAY [Concomitant]
     Dosage: BEFORE NEXAVAR ADMINISTRATION
     Route: 048
     Dates: end: 20100807
  2. MEVALOTIN [Concomitant]
     Dosage: BEFORE NEXAVAR ADMINISTRATION
     Route: 048
  3. LENDORMIN [Concomitant]
     Dosage: 0.25 MG (DAILY DOSE), , ORAL
     Route: 048
     Dates: start: 20100722, end: 20100809
  4. URSODEOXYCHOLIC ACID [Concomitant]
     Route: 048
  5. FLIVAS [Concomitant]
     Dosage: 25 MG (DAILY DOSE), , ORAL
     Route: 048
     Dates: start: 20100727, end: 20100810
  6. ALLELOCK [Concomitant]
     Dosage: BEFORE NEXAVAR ADMINISTRATION
     Route: 048
  7. LIVACT [Concomitant]
     Dosage: BEFORE NEXAVAR ADMINISTRATION
     Route: 048
  8. NEXAVAR [Suspect]
     Indication: HEPATIC NEOPLASM MALIGNANT
     Route: 048
     Dates: start: 20100721, end: 20100730
  9. TRYPTANOL [Concomitant]
     Dosage: 10 MG (DAILY DOSE), , ORAL
     Route: 048
     Dates: start: 20100727, end: 20100810
  10. URSO 250 [Concomitant]
     Dosage: BEFORE NEXAVAR ADMINISTRATION
     Route: 048
  11. CHOLEBRINE [Concomitant]
     Dosage: BEFORE NEXAVAR ADMINISTRATION
     Route: 048
  12. MEVARICH KAKEN [Concomitant]
     Route: 048
  13. MAGMITT [Concomitant]
     Dosage: BEFORE NEXAVAR ADMINISTRATION
     Route: 048
  14. GASTER D [Concomitant]
     Dosage: BEFORE NEXAVAR ADMINISTRATION
     Route: 048
  15. GASMET [Concomitant]
     Route: 048

REACTIONS (5)
  - HYPERTENSION [None]
  - INSOMNIA [None]
  - HEPATIC FUNCTION ABNORMAL [None]
  - POLLAKIURIA [None]
  - PYREXIA [None]
